FAERS Safety Report 22826973 (Version 6)
Quarter: 2023Q4

REPORT INFORMATION
  Report Type: Report from Study
  Country: DE (occurrence: DE)
  Receive Date: 20230816
  Receipt Date: 20231212
  Transmission Date: 20240110
  Serious: Yes (Hospitalization, Other)
  Sender: FDA-Public Use
  Company Number: DE-ARGENX-2023-ARGX-DE002674

PATIENT

DRUGS (2)
  1. VYVGART [Suspect]
     Active Substance: EFGARTIGIMOD ALFA-FCAB
     Indication: Myasthenia gravis
     Dosage: UNK
     Route: 065
  2. CORTISONE [Concomitant]
     Active Substance: CORTISONE
     Indication: Myasthenia gravis
     Dosage: 20 MG, DAILY
     Route: 048
     Dates: start: 20221201

REACTIONS (16)
  - Cough [Recovered/Resolved]
  - Nasopharyngitis [Recovered/Resolved]
  - Rib fracture [Recovered/Resolved]
  - Infected bite [Not Recovered/Not Resolved]
  - Dyspnoea [Not Recovered/Not Resolved]
  - Painful respiration [Not Recovered/Not Resolved]
  - Mastication disorder [Not Recovered/Not Resolved]
  - Dysphagia [Not Recovered/Not Resolved]
  - Eyelid ptosis [Not Recovered/Not Resolved]
  - Feeling hot [Recovered/Resolved]
  - Body temperature increased [Recovered/Resolved]
  - Hypersomnia [Recovered/Resolved]
  - Nocturnal dyspnoea [Recovered/Resolved]
  - Fatigue [Recovered/Resolved]
  - Asthenia [Recovered/Resolved]
  - Asthenia [Unknown]

NARRATIVE: CASE EVENT DATE: 20230804
